FAERS Safety Report 5941404-5 (Version None)
Quarter: 2008Q4

REPORT INFORMATION
  Report Type: 
  Country: None (occurrence: None)
  Receive Date: 20081104
  Receipt Date: 20081104
  Transmission Date: 20090506
  Serious: No
  Sender: FDA-Public Use
  Company Number: None

PATIENT
  Age: 64 Year
  Sex: Female
  Weight: 72.5755 kg

DRUGS (2)
  1. NITROFURANTOIN [Suspect]
     Indication: CYSTITIS
     Dosage: ONE TWICE DAILY PO
     Route: 048
     Dates: start: 20081023, end: 20081030
  2. NITROFURANTOIN [Suspect]
     Indication: CYSTITIS
     Dosage: ONE TWICE DAILY PO
     Route: 048
     Dates: start: 20081030, end: 20081030

REACTIONS (3)
  - HYPERSOMNIA [None]
  - RASH ERYTHEMATOUS [None]
  - SOMNOLENCE [None]
